FAERS Safety Report 21339938 (Version 6)
Quarter: 2022Q4

REPORT INFORMATION
  Report Type: Report from Study
  Country: US (occurrence: US)
  Receive Date: 20220915
  Receipt Date: 20221120
  Transmission Date: 20230113
  Serious: Yes (Hospitalization)
  Sender: FDA-Public Use
  Company Number: US-JNJFOC-20220924440

PATIENT
  Age: 11 Year
  Sex: Male
  Weight: 29.9 kg

DRUGS (7)
  1. INFLIXIMAB [Suspect]
     Active Substance: INFLIXIMAB
     Indication: Inflammatory bowel disease
     Route: 041
     Dates: start: 20140214
  2. ACETAMINOPHEN [Concomitant]
     Active Substance: ACETAMINOPHEN
  3. PREDNISONE [Concomitant]
     Active Substance: PREDNISONE
  4. AZATHIOPRINE [Concomitant]
     Active Substance: AZATHIOPRINE
  5. ALLOPURINOL [Concomitant]
     Active Substance: ALLOPURINOL
  6. APRISO [Concomitant]
     Active Substance: MESALAMINE
  7. KEPPRA [Concomitant]
     Active Substance: LEVETIRACETAM

REACTIONS (1)
  - Seizure [Recovered/Resolved]

NARRATIVE: CASE EVENT DATE: 20171115
